FAERS Safety Report 7788673-7 (Version None)
Quarter: 2011Q3

REPORT INFORMATION
  Report Type: 
  Country: None (occurrence: None)
  Receive Date: 20110930
  Receipt Date: 20110927
  Transmission Date: 20111222
  Serious: Yes (Hospitalization)
  Sender: FDA-Public Use
  Company Number: IT-ABBOTT-11P-083-0841581-00

PATIENT
  Age: 61 Year
  Sex: Male

DRUGS (8)
  1. NITROGLYCERIN [Concomitant]
     Indication: PRODUCT USED FOR UNKNOWN INDICATION
  2. ASPIRIN [Concomitant]
     Indication: PRODUCT USED FOR UNKNOWN INDICATION
  3. LANSOPRAZOLE [Concomitant]
     Indication: PRODUCT USED FOR UNKNOWN INDICATION
  4. LASIX [Concomitant]
     Indication: PRODUCT USED FOR UNKNOWN INDICATION
  5. PAROXETINE HCL [Suspect]
     Indication: DEPRESSION
     Dosage: 20 MG DAILY
     Route: 048
     Dates: start: 20110611, end: 20110625
  6. TEGRETOL [Suspect]
     Indication: EPILEPSY
     Dosage: 600 MG DAILY
     Route: 048
     Dates: start: 20110611, end: 20110625
  7. DEPAKENE [Suspect]
     Indication: EPILEPSY
     Dosage: 400 MG DAILY
     Route: 048
     Dates: start: 20110611, end: 20110625
  8. CLOZAPINE [Suspect]
     Indication: PARKINSON'S DISEASE
     Dosage: 50 MG DAILY
     Route: 048
     Dates: start: 20110611, end: 20110625

REACTIONS (3)
  - SYNCOPE [None]
  - TRISMUS [None]
  - TONIC CLONIC MOVEMENTS [None]
